FAERS Safety Report 12099652 (Version 1)
Quarter: 2016Q1

REPORT INFORMATION
  Report Type: Spontaneous
  Country: US (occurrence: None)
  Receive Date: 20160219
  Receipt Date: 20160219
  Transmission Date: 20160526
  Serious: No
  Sender: FDA-Public Use
  Company Number: None

PATIENT

DRUGS (2)
  1. AMIODARONE INJECTION AMIODARONE HCL [Suspect]
     Active Substance: AMIODARONE
     Dosage: INJECTABLE INTRAVENOUS SINGLE-USE VIAL 9 ML ?
     Route: 042
  2. TRANEXAMIC ACID. [Suspect]
     Active Substance: TRANEXAMIC ACID
     Dosage: INJECTABLE INJECTION  SINGLE-DOSE VIAL 10 ML?

REACTIONS (1)
  - Product packaging confusion [None]
